FAERS Safety Report 8511083-1 (Version None)
Quarter: 2012Q3

REPORT INFORMATION
  Report Type: 
  Country: None (occurrence: None)
  Receive Date: 20120705
  Receipt Date: 20120424
  Transmission Date: 20120928
  Serious: Yes (Hospitalization)
  Sender: FDA-Public Use
  Company Number: 20120423

PATIENT
  Sex: Female
  Weight: 90.6287 kg

DRUGS (14)
  1. MIFEPRISTONE (MIFEPREX) [Suspect]
     Indication: CUSHING'S SYNDROME
     Dosage: 1200MG QD BY MOUTH
     Dates: start: 20081223
  2. OMEPRAZOLE [Concomitant]
  3. SYNTHROID [Concomitant]
  4. MULTIVITAMN [Concomitant]
  5. POTASSIUM CITRATE [Concomitant]
  6. MELATONIN [Concomitant]
  7. LOTRISONE [Concomitant]
  8. STOOL SOFTENER [Concomitant]
  9. OXYCONTIN [Concomitant]
  10. GARLIC TABLET [Concomitant]
  11. ASPIRIN [Concomitant]
  12. MAGNESIUM SULFATE [Concomitant]
  13. CALCIUM [Concomitant]
  14. OMEPRAZOLE [Concomitant]

REACTIONS (1)
  - HAEMORRHAGIC CEREBRAL INFARCTION [None]
